FAERS Safety Report 8889269 (Version 2)
Quarter: 2012Q4

REPORT INFORMATION
  Report Type: Report from Study
  Country: ES (occurrence: ES)
  Receive Date: 20121106
  Receipt Date: 20121116
  Transmission Date: 20130627
  Serious: Yes (Other)
  Sender: FDA-Public Use
  Company Number: ES-JNJFOC-20121013012

PATIENT
  Age: 76 Year
  Sex: Female
  Weight: 85 kg

DRUGS (2)
  1. USTEKINUMAB [Suspect]
     Indication: PSORIASIS
     Route: 058
     Dates: start: 20110314
  2. USTEKINUMAB [Suspect]
     Indication: PSORIASIS
     Route: 058

REACTIONS (2)
  - Peritonitis [Recovered/Resolved]
  - Inappropriate schedule of drug administration [Recovered/Resolved]
